FAERS Safety Report 23407331 (Version 1)
Quarter: 2024Q1

REPORT INFORMATION
  Report Type: Report from Study
  Country: CL (occurrence: CL)
  Receive Date: 20240116
  Receipt Date: 20240116
  Transmission Date: 20240410
  Serious: Yes (Other)
  Sender: FDA-Public Use
  Company Number: CL-ABBVIE-5583322

PATIENT
  Age: 46 Year
  Sex: Female

DRUGS (1)
  1. HUMIRA [Suspect]
     Active Substance: ADALIMUMAB
     Indication: Rheumatoid arthritis
     Dosage: FORM STRENGTH: 40 MG
     Route: 058
     Dates: start: 20180101

REACTIONS (3)
  - Gastric ulcer haemorrhage [Not Recovered/Not Resolved]
  - Abdominal pain [Recovering/Resolving]
  - Gastric ulcer perforation [Not Recovered/Not Resolved]

NARRATIVE: CASE EVENT DATE: 20230701
